FAERS Safety Report 8420784-5 (Version None)
Quarter: 2012Q2

REPORT INFORMATION
  Report Type: 
  Country: None (occurrence: None)
  Receive Date: 20120608
  Receipt Date: 20120604
  Transmission Date: 20120825
  Serious: No
  Sender: FDA-Public Use
  Company Number: US-PFIZER INC-2012134352

PATIENT
  Sex: Female
  Weight: 56.689 kg

DRUGS (6)
  1. PRISTIQ [Suspect]
     Indication: ANXIETY
     Dosage: 50 MG, ALTERNATE DAY
     Route: 048
  2. SINGULAIR [Concomitant]
     Indication: ASTHMA
     Dosage: UNK, DAILY
  3. PROAIR HFA [Concomitant]
     Indication: ASTHMA
     Dosage: UNK, AS NEEDED
  4. PRISTIQ [Suspect]
     Indication: DEPRESSION
     Dosage: 50 MG DAILY
     Route: 048
  5. SINGULAIR [Concomitant]
     Indication: HYPERSENSITIVITY
  6. ASMANEX TWISTHALER [Concomitant]
     Indication: ASTHMA
     Dosage: UNK, 2X/DAY

REACTIONS (4)
  - DIZZINESS [None]
  - IMPAIRED WORK ABILITY [None]
  - HEADACHE [None]
  - NAUSEA [None]
